FAERS Safety Report 19844070 (Version 1)
Quarter: 2021Q3

REPORT INFORMATION
  Report Type: Report from Study
  Country: None (occurrence: US)
  Receive Date: 20210917
  Receipt Date: 20210917
  Transmission Date: 20211014
  Serious: Yes (Other)
  Sender: FDA-Public Use
  Company Number: US-ABBVIE-21K-163-4081485-00

PATIENT
  Age: 63 Year
  Sex: Male

DRUGS (1)
  1. HUMIRA [Suspect]
     Active Substance: ADALIMUMAB
     Indication: COLITIS ULCERATIVE
     Dosage: DAY 1
     Route: 058
     Dates: start: 20210910, end: 20210910

REACTIONS (9)
  - Frequent bowel movements [Unknown]
  - Decreased appetite [Unknown]
  - Abdominal pain [Unknown]
  - Asthenia [Unknown]
  - Abdominal distension [Unknown]
  - Anaemia [Unknown]
  - Diarrhoea [Unknown]
  - Defaecation urgency [Unknown]
  - Fatigue [Unknown]

NARRATIVE: CASE EVENT DATE: 202109
